FAERS Safety Report 11917787 (Version 2)
Quarter: 2016Q1

REPORT INFORMATION
  Report Type: Spontaneous
  Country: US (occurrence: US)
  Receive Date: 20160114
  Receipt Date: 20160115
  Transmission Date: 20160526
  Serious: Yes (Other)
  Sender: FDA-Public Use
  Company Number: US-BAYER-2016-005044

PATIENT
  Age: 43 Year
  Sex: Male

DRUGS (2)
  1. MILK OF MAGNESIA ORIGINAL [Suspect]
     Active Substance: MAGNESIUM HYDROXIDE
     Indication: CONSTIPATION
     Dosage: 8 TABLESPOON WITHIN AN HOUR
     Dates: start: 20160105, end: 20160105
  2. MILK OF MAGNESIA ORIGINAL [Suspect]
     Active Substance: MAGNESIUM HYDROXIDE
     Indication: CONSTIPATION
     Dosage: 120 ML PLUS A SIP, ONCE
     Route: 048
     Dates: start: 20160105, end: 20160105

REACTIONS (7)
  - Haematochezia [Not Recovered/Not Resolved]
  - Dizziness [None]
  - Rectal haemorrhage [None]
  - Product use issue [None]
  - Pyrexia [None]
  - Diarrhoea [None]
  - Product use issue [None]

NARRATIVE: CASE EVENT DATE: 20160105
